FAERS Safety Report 8963732 (Version 2)
Quarter: 2013Q1

REPORT INFORMATION
  Report Type: Spontaneous
  Country: BE (occurrence: BE)
  Receive Date: 20121214
  Receipt Date: 20130102
  Transmission Date: 20140127
  Serious: Yes (Hospitalization)
  Sender: FDA-Public Use
  Company Number: BE-009507513-1212BEL004461

PATIENT
  Age: 66 Year
  Sex: Female

DRUGS (2)
  1. FOSAMAX [Suspect]
     Indication: OSTEOPOROSIS
     Dosage: 70 MG, QW
     Route: 048
     Dates: start: 2004
  2. LIPITOR [Concomitant]
     Dosage: UNK

REACTIONS (4)
  - Pathological fracture [Recovering/Resolving]
  - Stress fracture [Unknown]
  - Poliomyelitis [Unknown]
  - Osteopenia [Unknown]
